FAERS Safety Report 12690959 (Version 2)
Quarter: 2016Q4

REPORT INFORMATION
  Report Type: Report from Study
  Country: BR (occurrence: BR)
  Receive Date: 20160826
  Receipt Date: 20161025
  Transmission Date: 20170207
  Serious: Yes (Other)
  Sender: FDA-Public Use
  Company Number: ALCN2016BR005864

PATIENT
  Age: 79 Year
  Sex: Female
  Weight: 52 kg

DRUGS (1)
  1. TRAVATAN [Suspect]
     Active Substance: TRAVOPROST
     Indication: GLAUCOMA
     Dosage: 1 GTT, QHS
     Route: 047

REACTIONS (3)
  - Maculopathy [Unknown]
  - Visual acuity reduced [Unknown]
  - Macular degeneration [Unknown]

NARRATIVE: CASE EVENT DATE: 201603
